FAERS Safety Report 5283860-4 (Version None)
Quarter: 2007Q1

REPORT INFORMATION
  Report Type: 
  Country: None (occurrence: None)
  Receive Date: 20070327
  Receipt Date: 20070315
  Transmission Date: 20070707
  Serious: Yes (Hospitalization)
  Sender: FDA-Public Use
  Company Number: WAES 0703USA03560

PATIENT
  Age: 75 Year
  Sex: Male

DRUGS (7)
  1. PRINIVIL [Suspect]
     Indication: HYPERTENSION
     Dosage: UNK/UNK/PO
     Route: 048
     Dates: start: 19990101, end: 20070222
  2. PRINIVIL [Suspect]
     Indication: HYPERTENSION
     Dosage: UNK/UNK/PO
     Route: 048
     Dates: start: 20070223
  3. COUMADIN [Suspect]
     Dosage: 5 MG/DAILY/UNK
     Dates: start: 20070207, end: 20070222
  4. COUMADIN [Suspect]
     Dosage: 5 MG/DAILY/UNK
     Dates: start: 20070223
  5. HYDRODIURIL [Suspect]
     Indication: POLYURIA
     Dosage: UNK/UNK/PO
     Route: 048
     Dates: start: 19990101, end: 20070222
  6. ASPIRIN [Concomitant]
  7. SULFAMETHOXAZOLE (+) TRIMETHOPRI [Concomitant]

REACTIONS (10)
  - ACUTE PRERENAL FAILURE [None]
  - COAGULOPATHY [None]
  - FAT EMBOLISM [None]
  - HEADACHE [None]
  - HYPOTENSION [None]
  - HYPOVOLAEMIA [None]
  - MALAISE [None]
  - RENAL FAILURE [None]
  - URINARY TRACT INFECTION [None]
  - UROSEPSIS [None]
